FAERS Safety Report 4889685-3 (Version None)
Quarter: 2006Q1

REPORT INFORMATION
  Report Type: 
  Country: None (occurrence: None)
  Receive Date: 20060120
  Receipt Date: 20060106
  Transmission Date: 20060701
  Serious: Yes (Death)
  Sender: FDA-Public Use
  Company Number: 2006S1000177

PATIENT
  Age: 76 Year
  Sex: Male

DRUGS (3)
  1. CLOZAPINE [Suspect]
     Indication: DEMENTIA
     Dosage: 62.5 MG; QD; ORAL
     Route: 048
     Dates: start: 20030730
  2. SIMVASTATIN [Concomitant]
  3. ZONISAMIDE [Concomitant]

REACTIONS (1)
  - DEATH [None]
